FAERS Safety Report 6412093-0 (Version None)
Quarter: 2009Q4

REPORT INFORMATION
  Report Type: 
  Country: None (occurrence: None)
  Receive Date: 20091023
  Receipt Date: 20091015
  Transmission Date: 20100525
  Serious: Yes (Other)
  Sender: FDA-Public Use
  Company Number: US-ASTRAZENECA-2009UW21588

PATIENT
  Age: 49 Year
  Sex: Male
  Weight: 97.5 kg

DRUGS (3)
  1. SEROQUEL [Suspect]
     Indication: BIPOLAR I DISORDER
     Route: 048
     Dates: start: 19970101
  2. DEPAKOTE [Concomitant]
     Dates: start: 20070101
  3. ZOLOFT [Concomitant]
     Dates: start: 20070101

REACTIONS (6)
  - BLOOD CHOLESTEROL INCREASED [None]
  - DIABETIC NEUROPATHY [None]
  - HYPERLIPIDAEMIA [None]
  - NEUROLEPTIC MALIGNANT SYNDROME [None]
  - TYPE 2 DIABETES MELLITUS [None]
  - WEIGHT INCREASED [None]
